FAERS Safety Report 7942973-6 (Version None)
Quarter: 2011Q4

REPORT INFORMATION
  Report Type: 
  Country: None (occurrence: None)
  Receive Date: 20111128
  Receipt Date: 20111114
  Transmission Date: 20120403
  Serious: Yes (Other)
  Sender: FDA-Public Use
  Company Number: US-BAYER-2011-110647

PATIENT
  Age: 46 Year
  Sex: Male

DRUGS (4)
  1. KEPPRA [Concomitant]
  2. ONE-A-DAY MEN'S 50 + ADVANTAGE [Suspect]
     Dosage: 1 DF, QD
     Route: 048
     Dates: end: 20111113
  3. CRESTOR [Concomitant]
  4. CARBATROL [Concomitant]

REACTIONS (3)
  - AURA [None]
  - PETIT MAL EPILEPSY [None]
  - DIZZINESS [None]
